FAERS Safety Report 16000054 (Version 1)
Quarter: 2019Q1

REPORT INFORMATION
  Report Type: Spontaneous
  Country: CN (occurrence: CN)
  Receive Date: 20190225
  Receipt Date: 20190225
  Transmission Date: 20190418
  Serious: Yes (Hospitalization)
  Sender: FDA-Public Use
  Company Number: CN-ELI_LILLY_AND_COMPANY-CN201902009976

PATIENT
  Age: 41 Year
  Sex: Male
  Weight: 73 kg

DRUGS (5)
  1. HUMULIN N [Suspect]
     Active Substance: INSULIN HUMAN
     Indication: TYPE 1 DIABETES MELLITUS
     Dosage: 12 U, EACH EVENING
     Route: 058
     Dates: start: 2010
  2. LISPRO [Suspect]
     Active Substance: INSULIN LISPRO
     Indication: TYPE 1 DIABETES MELLITUS
     Dosage: 10 U, EACH MORNING
     Route: 065
  3. INSULIN HUMAN [Suspect]
     Active Substance: INSULIN HUMAN
     Dosage: 10 U, EACH EVENING (NIGHT)
     Route: 058
     Dates: start: 2010
  4. INSULIN HUMAN [Suspect]
     Active Substance: INSULIN HUMAN
     Indication: TYPE 1 DIABETES MELLITUS
     Dosage: 8 U, BID (MORNING AND NOON)
     Route: 058
     Dates: start: 2010
  5. LISPRO [Suspect]
     Active Substance: INSULIN LISPRO
     Dosage: 8 U, BID (NOON AND EVENING)
     Route: 065

REACTIONS (2)
  - Blood glucose abnormal [Unknown]
  - Blood glucose fluctuation [Unknown]
